FAERS Safety Report 5421826-1 (Version None)
Quarter: 2007Q3

REPORT INFORMATION
  Report Type: 
  Country: None (occurrence: None)
  Receive Date: 20070820
  Receipt Date: 20070806
  Transmission Date: 20080115
  Serious: Yes (Hospitalization)
  Sender: FDA-Public Use
  Company Number: CLOF-10629

PATIENT
  Age: 80 Year
  Sex: Female

DRUGS (7)
  1. CLOFARABINE. MFR: GENZYME [Suspect]
     Indication: ACUTE MYELOID LEUKAEMIA
     Dosage: 30 MG/M2 QD X 5 IV
     Route: 042
     Dates: start: 20070510, end: 20070514
  2. CLOFARABINE. MFR: GENZYME [Suspect]
     Indication: ACUTE MYELOID LEUKAEMIA
     Dosage: 20 MG/M2 QD X 5 IV
     Route: 042
     Dates: start: 20070619, end: 20070623
  3. COLACE. MFR: MEAD JOHNSON LABORATORIES [Concomitant]
  4. PROTONIX. MFR: PHARMACIA CORPORATION [Concomitant]
  5. COREG. MFR: SMITH KLINE BEECHAM [Concomitant]
  6. VALSARTAN [Concomitant]
  7. SENOKOT. MFR: WESTMINSTER LABORATORIES LIMITED [Concomitant]

REACTIONS (7)
  - ASTHENIA [None]
  - CLOSTRIDIAL INFECTION [None]
  - DIARRHOEA [None]
  - DYSPHAGIA [None]
  - HYPOKALAEMIA [None]
  - HYPOMAGNESAEMIA [None]
  - ORAL CANDIDIASIS [None]
